FAERS Safety Report 24407369 (Version 2)
Quarter: 2025Q1

REPORT INFORMATION
  Report Type: Report from Study
  Country: US (occurrence: US)
  Receive Date: 20241007
  Receipt Date: 20250113
  Transmission Date: 20250408
  Serious: Yes (Hospitalization, Other)
  Sender: BAYER HEALTHCARE PHARMACEUTICALS INC.
  Company Number: US-BAYER-2024A140395

PATIENT
  Age: 68 Year
  Sex: Male

DRUGS (17)
  1. NUBEQA [Suspect]
     Active Substance: DAROLUTAMIDE
     Indication: Metastases to lung
     Dosage: 600 MG, BID WITH FOOD
     Route: 048
  2. NUBEQA [Suspect]
     Active Substance: DAROLUTAMIDE
     Indication: Prostate cancer
  3. VITAMINS [Concomitant]
     Active Substance: VITAMINS
  4. TEARS AGAIN [Concomitant]
     Active Substance: POLYVINYL ALCOHOL
  5. IRON [Concomitant]
     Active Substance: IRON
  6. ELIGARD [Concomitant]
     Active Substance: LEUPROLIDE ACETATE
  7. VITAMIN C [Concomitant]
     Active Substance: ASCORBIC ACID
  8. VITAMIN D [Concomitant]
     Active Substance: VITAMIN D NOS
  9. ASPIRIN [Concomitant]
     Active Substance: ASPIRIN
  10. ATORVASTATIN [Concomitant]
     Active Substance: ATORVASTATIN
  11. CHLORTHALIDONE [Concomitant]
     Active Substance: CHLORTHALIDONE
  12. LISINOPRIL [Concomitant]
     Active Substance: LISINOPRIL
  13. METFORMIN [Concomitant]
     Active Substance: METFORMIN HYDROCHLORIDE
  14. METOPROLOL SUCCINATE [Concomitant]
     Active Substance: METOPROLOL SUCCINATE
  15. TAMSULOSIN HYDROCHLORIDE [Concomitant]
     Active Substance: TAMSULOSIN HYDROCHLORIDE
  16. GABAPENTIN [Concomitant]
     Active Substance: GABAPENTIN
  17. PROCHLORPERAZINE [Concomitant]
     Active Substance: PROCHLORPERAZINE

REACTIONS (4)
  - Arterial occlusive disease [None]
  - Atrioventricular block [Not Recovered/Not Resolved]
  - Anaemia [None]
  - Red blood cell count decreased [None]

NARRATIVE: CASE EVENT DATE: 20240101
